FAERS Safety Report 10615055 (Version 2)
Quarter: 2014Q4

REPORT INFORMATION
  Report Type: Report from Study
  Country: RU (occurrence: RU)
  Receive Date: 20141201
  Receipt Date: 20141229
  Transmission Date: 20150529
  Serious: Yes (Hospitalization, Disabling)
  Sender: FDA-Public Use
  Company Number: PHHY2014RU155668

PATIENT
  Age: 67 Year
  Sex: Female

DRUGS (1)
  1. ACLASTA [Suspect]
     Active Substance: ZOLEDRONIC ACID
     Indication: OSTEOPOROSIS
     Dosage: UNK
     Route: 042
     Dates: start: 20140729

REACTIONS (2)
  - Hand fracture [Recovered/Resolved with Sequelae]
  - Humerus fracture [Recovering/Resolving]

NARRATIVE: CASE EVENT DATE: 20141119
